FAERS Safety Report 11743025 (Version 1)
Quarter: 2015Q4

REPORT INFORMATION
  Report Type: Spontaneous
  Country: CH (occurrence: CH)
  Receive Date: 20151116
  Receipt Date: 20151116
  Transmission Date: 20160304
  Serious: Yes (Hospitalization, Other)
  Sender: FDA-Public Use
  Company Number: CH-PFIZER INC-2015385713

PATIENT
  Age: 13 Year
  Sex: Female
  Weight: 42 kg

DRUGS (10)
  1. ANTRA [Concomitant]
     Active Substance: OMEPRAZOLE
     Indication: PROPHYLAXIS
     Dosage: 40 MG, 1X/DAY
     Route: 048
  2. PROXEN [Concomitant]
     Active Substance: NAPROXEN SODIUM
     Indication: JUVENILE IDIOPATHIC ARTHRITIS
     Dosage: 250 MG, 2X/DAY
     Route: 048
  3. SANDIMMUN [Concomitant]
     Active Substance: CYCLOSPORINE
     Indication: JUVENILE IDIOPATHIC ARTHRITIS
     Dosage: 100 MG, 2X/DAY
     Route: 048
     Dates: start: 20150911
  4. SOLU-MEDROL [Suspect]
     Active Substance: METHYLPREDNISOLONE SODIUM SUCCINATE
     Indication: JUVENILE IDIOPATHIC ARTHRITIS
     Dosage: 1000 MG, DAILY
     Route: 042
     Dates: start: 20150911, end: 20150913
  5. SOLU-MEDROL [Suspect]
     Active Substance: METHYLPREDNISOLONE SODIUM SUCCINATE
     Indication: HISTIOCYTOSIS HAEMATOPHAGIC
  6. ROCEPHIN [Suspect]
     Active Substance: CEFTRIAXONE SODIUM
     Dosage: 2 G, 1X/DAY
     Route: 042
     Dates: start: 20150911, end: 20150913
  7. KINERET [Concomitant]
     Active Substance: ANAKINRA
     Dosage: 200 MG, DAILY
     Route: 058
  8. KINERET [Concomitant]
     Active Substance: ANAKINRA
     Indication: JUVENILE IDIOPATHIC ARTHRITIS
     Dosage: 100 MG, DAILY
     Route: 058
  9. CALCIMAGON D3 [Concomitant]
     Active Substance: CALCIUM\CHOLECALCIFEROL
     Indication: STEROID THERAPY
     Dosage: 500 MG, 1X/DAY
     Route: 048
  10. SANDIMMUN [Concomitant]
     Active Substance: CYCLOSPORINE
     Dosage: 150 MG IN THE MORNING AND 200 MG IN THE EVENING (THERAPEUTIC DRUG MONITORING)
     Route: 048

REACTIONS (1)
  - Hypothermia [Recovered/Resolved]

NARRATIVE: CASE EVENT DATE: 20150913
